FAERS Safety Report 18835389 (Version 1)
Quarter: 2021Q1

REPORT INFORMATION
  Report Type: Spontaneous
  Country: US (occurrence: US)
  Receive Date: 20210203
  Receipt Date: 20210203
  Transmission Date: 20210419
  Serious: No
  Sender: FDA-Public Use
  Company Number: US-ALLERGAN-2018322US

PATIENT
  Sex: Female

DRUGS (2)
  1. BOTOX [Suspect]
     Active Substance: ONABOTULINUMTOXINA
     Dosage: 64 UNITS, SINGLE
     Route: 065
     Dates: start: 20200406, end: 20200406
  2. BOTOX [Suspect]
     Active Substance: ONABOTULINUMTOXINA
     Indication: BLEPHAROSPASM
     Dosage: 36 UNITS, SINGLE
     Route: 065
     Dates: start: 20200406, end: 20200406

REACTIONS (2)
  - Drug ineffective [Unknown]
  - Product storage error [Unknown]
